FAERS Safety Report 23625488 (Version 2)
Quarter: 2024Q1

REPORT INFORMATION
  Report Type: Spontaneous
  Country: RU (occurrence: None)
  Receive Date: 20240313
  Receipt Date: 20240326
  Transmission Date: 20240410
  Serious: No
  Sender: FDA-Public Use
  Company Number: RU-ROCHE-3520297

PATIENT
  Sex: Female

DRUGS (10)
  1. ATEZOLIZUMAB [Suspect]
     Active Substance: ATEZOLIZUMAB
     Indication: Breast cancer
     Dosage: ON DAYS 1, 15 OF 28-DAY CYCLE
     Route: 041
     Dates: start: 20220804, end: 20220818
  2. ATEZOLIZUMAB [Suspect]
     Active Substance: ATEZOLIZUMAB
     Dosage: ON DAYS 1, 15 OF 28-DAY CYCLE
     Route: 041
     Dates: start: 20220902, end: 20220916
  3. ATEZOLIZUMAB [Suspect]
     Active Substance: ATEZOLIZUMAB
     Dosage: ON DAYS 1, 15 OF 28-DAY CYCLE
     Route: 041
     Dates: start: 20220930, end: 20221014
  4. ATEZOLIZUMAB [Suspect]
     Active Substance: ATEZOLIZUMAB
     Dosage: ON DAYS 1, 15 OF 28-DAY CYCLE
     Route: 041
     Dates: start: 20221102, end: 20221116
  5. ATEZOLIZUMAB [Suspect]
     Active Substance: ATEZOLIZUMAB
     Dosage: ON DAYS 1, 15 OF 28-DAY CYCLE
     Route: 041
  6. PACLITAXEL [Suspect]
     Active Substance: PACLITAXEL
     Indication: Breast cancer
     Dosage: ON DAYS 1, 8, 15 OF 28-DAY CYCLE
     Route: 041
     Dates: start: 20220804, end: 20220818
  7. PACLITAXEL [Suspect]
     Active Substance: PACLITAXEL
     Dosage: ON DAYS 1, 8, 15 OF 28-DAY CYCLE
     Route: 041
     Dates: start: 20220902, end: 20220916
  8. PACLITAXEL [Suspect]
     Active Substance: PACLITAXEL
     Dosage: ON DAYS 1, 8, 15 OF 28-DAY CYCLE
     Route: 041
     Dates: start: 20220930, end: 20221014
  9. PACLITAXEL [Suspect]
     Active Substance: PACLITAXEL
     Dosage: ON DAYS 1, 8, 15 OF 28-DAY CYCLE
     Route: 041
     Dates: start: 20221102, end: 20221116
  10. PACLITAXEL [Suspect]
     Active Substance: PACLITAXEL
     Dosage: ON DAYS 1, 8, 15 OF 28-DAY CYCLE
     Route: 041

REACTIONS (7)
  - Neutropenia [Unknown]
  - Polyneuropathy [Unknown]
  - Asthenia [Unknown]
  - Pyrexia [Unknown]
  - Visual impairment [Unknown]
  - Chills [Unknown]
  - Pruritus [Unknown]
